FAERS Safety Report 9126093 (Version 1)
Quarter: 2013Q1

REPORT INFORMATION
  Report Type: Spontaneous
  Country: US (occurrence: US)
  Receive Date: 20130117
  Receipt Date: 20130117
  Transmission Date: 20140127
  Serious: Yes (Hospitalization)
  Sender: FDA-Public Use
  Company Number: US-RB-532-2004

PATIENT
  Age: 42 Year
  Sex: Female

DRUGS (1)
  1. SUBOXONE [Suspect]
     Indication: DRUG DEPENDENCE
     Dosage: DOSING DETAILS UNKNOWN
     Route: 065
     Dates: start: 2003

REACTIONS (7)
  - Abortion spontaneous [Recovered/Resolved]
  - Retained placenta or membranes [Recovered/Resolved]
  - Postpartum haemorrhage [Recovered/Resolved]
  - Autoimmune arthritis [Unknown]
  - Arthritis viral [Unknown]
  - Postpartum depression [Recovered/Resolved]
  - Exposure during pregnancy [Recovered/Resolved]
